FAERS Safety Report 6098748-9 (Version None)
Quarter: 2009Q1

REPORT INFORMATION
  Report Type: 
  Country: None (occurrence: None)
  Receive Date: 20090302
  Receipt Date: 20090218
  Transmission Date: 20090719
  Serious: Yes (Death, Life-Threatening)
  Sender: FDA-Public Use
  Company Number: JP-PFIZER INC-2009172522

PATIENT

DRUGS (23)
  1. ZYVOX [Suspect]
     Indication: PNEUMONIA STAPHYLOCOCCAL
     Dosage: 600 MG, 2X/DAY
     Route: 042
     Dates: start: 20071220, end: 20071227
  2. CONTOMIN [Concomitant]
     Route: 048
  3. MYSLEE [Concomitant]
     Route: 048
  4. HICALIQ [Concomitant]
     Route: 042
  5. AMIYU [Concomitant]
     Route: 042
  6. VITAJECT [Concomitant]
  7. HUMULIN R [Concomitant]
  8. GASTER [Concomitant]
     Route: 042
  9. POTASSIUM CHLORIDE [Concomitant]
     Route: 042
  10. CIPROXAN [Concomitant]
     Route: 042
  11. XANBON [Concomitant]
     Route: 042
  12. ZYLORIC ^FAES^ [Concomitant]
     Route: 048
  13. TORASEMIDE [Concomitant]
     Route: 048
  14. NORVASC [Concomitant]
     Route: 048
  15. MICARDIS [Concomitant]
     Route: 048
  16. LASIX [Concomitant]
  17. TANKARU [Concomitant]
     Route: 048
  18. LENDORMIN [Concomitant]
     Route: 048
  19. DEPAS [Concomitant]
     Route: 048
  20. ATARAX [Concomitant]
  21. RENAGEL [Concomitant]
     Route: 048
  22. DORNER [Concomitant]
     Route: 048
  23. DOXAZOSIN MESILATE [Concomitant]
     Route: 048

REACTIONS (2)
  - DEATH [None]
  - PANCYTOPENIA [None]
